FAERS Safety Report 8930002 (Version 1)
Quarter: 2012Q4

REPORT INFORMATION
  Report Type: 
  Country: NL (occurrence: NL)
  Receive Date: 20121128
  Receipt Date: 20121128
  Transmission Date: 20130627
  Serious: Yes (Other)
  Sender: FDA-Public Use
  Company Number: PHHY2012NL107943

PATIENT
  Sex: Female

DRUGS (3)
  1. CLINDAMYCINE [Suspect]
     Indication: INFECTION
     Dosage: 2 DF, TID (1800 mg daily_
     Route: 048
     Dates: start: 20121120, end: 20121125
  2. ACENOCOUMAROL [Concomitant]
  3. IRBESARTAN [Concomitant]

REACTIONS (2)
  - Oesophagitis [Not Recovered/Not Resolved]
  - Abdominal discomfort [Recovered/Resolved]
